FAERS Safety Report 19272392 (Version 1)
Quarter: 2021Q2

REPORT INFORMATION
  Report Type: Spontaneous
  Country: US (occurrence: US)
  Receive Date: 20210518
  Receipt Date: 20210518
  Transmission Date: 20210717
  Serious: No
  Sender: FDA-Public Use
  Company Number: US-THERAPEUTICSMD-2021TMD00633

PATIENT
  Age: 62 Year
  Sex: Female
  Weight: 51.47 kg

DRUGS (2)
  1. BIJUVA [Suspect]
     Active Substance: ESTRADIOL\PROGESTERONE
     Indication: HORMONE REPLACEMENT THERAPY
     Dosage: 1 CAPSULE, 1X/DAY
     Route: 048
     Dates: start: 20210127, end: 20210130
  2. SYNTHROID [Concomitant]
     Active Substance: LEVOTHYROXINE SODIUM

REACTIONS (16)
  - Pruritus [Recovered/Resolved]
  - Agitation [Recovered/Resolved]
  - Sluggishness [Recovered/Resolved]
  - Crying [Recovered/Resolved]
  - Unevaluable event [Recovered/Resolved]
  - Depressed mood [Recovered/Resolved]
  - Blindness [Recovered/Resolved]
  - Abdominal discomfort [Recovered/Resolved]
  - Dizziness [Recovered/Resolved]
  - Arthralgia [Recovered/Resolved]
  - Eating disorder [Recovered/Resolved]
  - Emotional disorder [Recovered/Resolved]
  - Sleep disorder [Recovered/Resolved]
  - Headache [Recovered/Resolved]
  - Diarrhoea [Recovered/Resolved]
  - Akathisia [Recovered/Resolved]

NARRATIVE: CASE EVENT DATE: 202101
